FAERS Safety Report 13228718 (Version 1)
Quarter: 2017Q1

REPORT INFORMATION
  Report Type: Spontaneous
  Country: US (occurrence: US)
  Receive Date: 20170213
  Receipt Date: 20170213
  Transmission Date: 20170428
  Serious: No
  Sender: FDA-Public Use
  Company Number: US-ROCHE-1845935

PATIENT
  Sex: Female
  Weight: 47.8 kg

DRUGS (4)
  1. XOLAIR [Suspect]
     Active Substance: OMALIZUMAB
     Indication: ASTHMA
     Route: 058
  2. IPRATROPIUM [Concomitant]
     Active Substance: IPRATROPIUM
     Route: 065
     Dates: start: 20160111
  3. FEXOFENADINE [Concomitant]
     Active Substance: FEXOFENADINE\FEXOFENADINE HYDROCHLORIDE
     Route: 048
     Dates: start: 20150323
  4. ALBUTEROL. [Concomitant]
     Active Substance: ALBUTEROL
     Dosage: ONCE IN 4 TO 6 HOURS
     Route: 065
     Dates: start: 20150116

REACTIONS (2)
  - No adverse event [Unknown]
  - Off label use [Unknown]
